FAERS Safety Report 8901850 (Version 1)
Quarter: 2012Q4

REPORT INFORMATION
  Report Type: Spontaneous
  Country: US (occurrence: None)
  Receive Date: 20121109
  Receipt Date: 20121109
  Transmission Date: 20130627
  Serious: Yes (Disabling, Other)
  Sender: FDA-Public Use
  Company Number: None

PATIENT
  Age: 63 Year
  Sex: Female
  Weight: 108.86 kg

DRUGS (1)
  1. JANUVIA [Suspect]
     Indication: TYPE 2 DIABETES MELLITUS
     Dosage: one tablet  once per day  po
     Route: 048
     Dates: start: 20091201, end: 20101201

REACTIONS (6)
  - Constipation [None]
  - Fluid retention [None]
  - Pruritus [None]
  - Middle insomnia [None]
  - Drug effect decreased [None]
  - Diarrhoea [None]
